FAERS Safety Report 6630782-X (Version None)
Quarter: 2010Q1

REPORT INFORMATION
  Report Type: 
  Country: None (occurrence: None)
  Receive Date: 20100311
  Receipt Date: 20100210
  Transmission Date: 20100710
  Serious: Yes (Hospitalization, Other)
  Sender: FDA-Public Use
  Company Number: PHHY2009US27681

PATIENT
  Sex: Female
  Weight: 79.1 kg

DRUGS (3)
  1. ERL 080A ERL+TAB [Suspect]
     Indication: RENAL TRANSPLANT
     Dosage: UNK
     Dates: end: 20071201
  2. ROCEPHIN [Concomitant]
  3. VANCOMYCIN [Concomitant]

REACTIONS (7)
  - DIABETES MELLITUS INADEQUATE CONTROL [None]
  - DIPLOPIA [None]
  - ERYTHEMA [None]
  - EXOPHTHALMOS [None]
  - EYE PAIN [None]
  - PERIORBITAL CELLULITIS [None]
  - SINUSITIS [None]
